FAERS Safety Report 10496743 (Version 3)
Quarter: 2014Q4

REPORT INFORMATION
  Report Type: Report from Study
  Country: JP (occurrence: JP)
  Receive Date: 20141006
  Receipt Date: 20141127
  Transmission Date: 20150528
  Serious: Yes (Hospitalization)
  Sender: FDA-Public Use
  Company Number: JP-AMGEN-JPNCT2014076403

PATIENT
  Age: 4 Year
  Sex: Male
  Weight: 11 kg

DRUGS (10)
  1. MIRIMOSTIM [Concomitant]
     Active Substance: MIRIMOSTIM
     Indication: NEUROBLASTOMA
     Dosage: 10 MG, UNK
     Route: 065
     Dates: start: 20140905
  2. PRIMPERAN [Concomitant]
     Active Substance: METOCLOPRAMIDE HYDROCHLORIDE
     Indication: NAUSEA
     Dosage: 9 MG, TID
     Route: 042
     Dates: start: 20140912, end: 20140920
  3. BLOPRESS [Concomitant]
     Active Substance: CANDESARTAN CILEXETIL
     Indication: HYPERTENSION
     Dosage: 4 MG, QD
     Route: 048
     Dates: start: 20130916
  4. EURAX [Concomitant]
     Active Substance: CROTAMITON
     Indication: RASH
     Dosage: UNK
     Route: 062
     Dates: start: 20140919, end: 20140920
  5. BENIDIPINE HYDROCHLORIDE [Concomitant]
     Active Substance: BENIDIPINE HYDROCHLORIDE
     Indication: HYPERTENSION
     Dosage: 1 MG, BID
     Route: 048
     Dates: start: 20140916, end: 20141003
  6. GASTER [Concomitant]
     Active Substance: FAMOTIDINE
     Indication: UPPER GASTROINTESTINAL HAEMORRHAGE
     Dosage: 10 MG, QD
     Route: 042
     Dates: start: 20140917, end: 20140924
  7. POLARAMINE [Concomitant]
     Active Substance: DEXCHLORPHENIRAMINE MALEATE
     Indication: RASH
     Dosage: 0.5 DF (0.5 A), QD
     Route: 042
     Dates: start: 20140919, end: 20140919
  8. PERDIPINE [Concomitant]
     Active Substance: NICARDIPINE HYDROCHLORIDE
     Indication: HYPERTENSION
     Dosage: 0.5 MG, QD
     Route: 042
     Dates: start: 20140916, end: 20140916
  9. BAKTAR [Concomitant]
     Active Substance: SULFAMETHOXAZOLE\TRIMETHOPRIM
     Indication: PNEUMOCYSTIS JIROVECII PNEUMONIA
     Dosage: 2.6 G (1.3 G, BID), 2X/WEEK
     Route: 048
     Dates: start: 20140827
  10. FILGRASTIM [Suspect]
     Active Substance: FILGRASTIM
     Indication: NEUROBLASTOMA
     Dosage: 63 MCG, UNK
     Route: 058
     Dates: start: 20140905, end: 20140918

REACTIONS (2)
  - Pancreatitis [Recovering/Resolving]
  - Splenomegaly [Unknown]

NARRATIVE: CASE EVENT DATE: 20140918
